FAERS Safety Report 5430024-7 (Version None)
Quarter: 2007Q3

REPORT INFORMATION
  Report Type: 
  Country: None (occurrence: None)
  Receive Date: 20070827
  Receipt Date: 20070817
  Transmission Date: 20080115
  Serious: Yes (Other)
  Sender: FDA-Public Use
  Company Number: 17255

PATIENT
  Age: 4 Year
  Sex: Male
  Weight: 15 kg

DRUGS (11)
  1. ATRACURIUM BESYLATE [Suspect]
     Indication: MAINTENANCE OF ANAESTHESIA
     Dosage: 0.5 MG/KG
  2. ATRACURIUM BESYLATE [Suspect]
     Indication: MAINTENANCE OF ANAESTHESIA
     Dosage: 10 MG
  3. PROMETHAZINE HCL [Concomitant]
  4. 5% DEXTROSE WITH NORMAL SALINE [Concomitant]
  5. THIOPENTONE SODIUM [Concomitant]
  6. SUCCINYLCHOLINE CHLORIDE [Concomitant]
  7. FENTANYL [Concomitant]
  8. 50% OXYGEN WITH NITROUS OXIDE [Concomitant]
  9. 0.6 - 0.8% SEVOFLURANE [Concomitant]
  10. 100% OXYGEN [Concomitant]
  11. NEOSTIGMINE [Concomitant]

REACTIONS (3)
  - APNOEA [None]
  - BRADYCARDIA [None]
  - WRONG DRUG ADMINISTERED [None]
